FAERS Safety Report 10052475 (Version 1)
Quarter: 2014Q2

REPORT INFORMATION
  Report Type: Spontaneous
  Country: PH (occurrence: PH)
  Receive Date: 20140402
  Receipt Date: 20140402
  Transmission Date: 20141212
  Serious: Yes (Other)
  Sender: FDA-Public Use
  Company Number: PH-009507513-1403PHL013341

PATIENT
  Age: 16 Year
  Sex: Male

DRUGS (1)
  1. ELICA [Suspect]
     Indication: DERMATITIS ATOPIC
     Dosage: UNK
     Route: 061
     Dates: start: 2007

REACTIONS (3)
  - Blindness unilateral [Unknown]
  - Visual acuity reduced [Unknown]
  - Cataract [Unknown]
